FAERS Safety Report 6647286-0 (Version None)
Quarter: 2010Q1

REPORT INFORMATION
  Report Type: 
  Country: None (occurrence: None)
  Receive Date: 20100323
  Receipt Date: 20100316
  Transmission Date: 20100710
  Serious: Yes (Other)
  Sender: FDA-Public Use
  Company Number: A0851367A

PATIENT
  Age: 50 Year
  Sex: Male
  Weight: 120 kg

DRUGS (5)
  1. WELLBUTRIN [Suspect]
     Route: 048
     Dates: start: 20091101
  2. CHANTIX [Suspect]
     Dosage: .5MG PER DAY
     Route: 048
     Dates: start: 20080101, end: 20080101
  3. LISINOPRIL [Suspect]
     Route: 065
     Dates: start: 20090101
  4. VALSARTAN [Concomitant]
  5. ARTHRITIS MEDICATION [Concomitant]

REACTIONS (6)
  - BLISTER [None]
  - CYST [None]
  - PAIN [None]
  - RHEUMATOID ARTHRITIS [None]
  - SCAR [None]
  - SKIN LESION [None]
